FAERS Safety Report 9300956 (Version 1)
Quarter: 2013Q2

REPORT INFORMATION
  Report Type: Spontaneous
  Country: US (occurrence: US)
  Receive Date: 20130521
  Receipt Date: 20130521
  Transmission Date: 20140414
  Serious: Yes (Other)
  Sender: FDA-Public Use
  Company Number: US-JNJFOC-20130506352

PATIENT
  Age: 70 Year
  Sex: Female
  Weight: 77.11 kg

DRUGS (4)
  1. XARELTO [Suspect]
     Indication: CEREBROVASCULAR ACCIDENT PROPHYLAXIS
     Route: 048
     Dates: start: 20130509
  2. XARELTO [Suspect]
     Indication: ATRIAL FIBRILLATION
     Route: 048
     Dates: start: 20130509
  3. CRESTOR [Concomitant]
     Indication: BLOOD CHOLESTEROL
     Route: 048
     Dates: start: 201302
  4. ATENOLOL [Concomitant]
     Indication: CARDIAC DISORDER
     Route: 048
     Dates: start: 201304

REACTIONS (3)
  - Cerebrovascular accident [Not Recovered/Not Resolved]
  - Asthenopia [Not Recovered/Not Resolved]
  - Dizziness [Not Recovered/Not Resolved]
